FAERS Safety Report 8991125 (Version 1)
Quarter: 2012Q4

REPORT INFORMATION
  Report Type: 
  Country: US (occurrence: US)
  Receive Date: 20121231
  Receipt Date: 20121231
  Transmission Date: 20130627
  Serious: No
  Sender: FDA-Public Use
  Company Number: US-BAYER-2012-132193

PATIENT
  Sex: Male

DRUGS (3)
  1. STIVARGA [Suspect]
     Dosage: 4 tablets a day
     Dates: start: 2012, end: 2012
  2. STIVARGA [Suspect]
     Dosage: 1 tablet a day
     Dates: start: 2012
  3. XELODA [Suspect]
     Dosage: UNK

REACTIONS (1)
  - Unevaluable event [None]
